FAERS Safety Report 6667826-5 (Version None)
Quarter: 2010Q2

REPORT INFORMATION
  Report Type: 
  Country: None (occurrence: None)
  Receive Date: 20100405
  Receipt Date: 20100324
  Transmission Date: 20101027
  Serious: Yes (Other)
  Sender: FDA-Public Use
  Company Number: GB-PFIZER INC-2010037396

PATIENT
  Age: 56 Year
  Sex: Female
  Weight: 95.5 kg

DRUGS (4)
  1. CHAMPIX [Suspect]
     Indication: SMOKING CESSATION THERAPY
     Dosage: 1 MG, 2X/DAY
     Route: 048
     Dates: start: 20100122, end: 20100226
  2. CLENIL [Concomitant]
     Dosage: 100 UG, UNK
     Dates: start: 20091216
  3. SIMVASTATIN [Concomitant]
     Indication: HYPERLIPIDAEMIA
     Dosage: 20 MG, UNK
     Route: 048
  4. ZOPICLONE [Concomitant]
     Dosage: 7.5 MG, UNK
     Route: 048

REACTIONS (3)
  - AGITATION [None]
  - ANXIETY [None]
  - TEARFULNESS [None]
